FAERS Safety Report 7343549-4 (Version None)
Quarter: 2011Q1

REPORT INFORMATION
  Report Type: 
  Country: None (occurrence: None)
  Receive Date: 20110310
  Receipt Date: 20100504
  Transmission Date: 20110831
  Serious: No
  Sender: FDA-Public Use
  Company Number: A0858279A

PATIENT
  Age: 27 Year
  Sex: Female

DRUGS (3)
  1. NICODERM CQ [Suspect]
  2. NICODERM CQ [Suspect]
  3. NICORETTE [Suspect]

REACTIONS (7)
  - OVERDOSE [None]
  - ABNORMAL DREAMS [None]
  - NICOTINE DEPENDENCE [None]
  - MALAISE [None]
  - GASTROOESOPHAGEAL REFLUX DISEASE [None]
  - INSOMNIA [None]
  - PALPITATIONS [None]
